FAERS Safety Report 8956508 (Version 3)
Quarter: 2013Q2

REPORT INFORMATION
  Report Type: Report from Study
  Country: US (occurrence: US)
  Receive Date: 20121210
  Receipt Date: 20130627
  Transmission Date: 20140414
  Serious: Yes (Hospitalization)
  Sender: FDA-Public Use
  Company Number: US-JNJFOC-20121201698

PATIENT
  Age: 18 Year
  Sex: Female
  Weight: 53 kg

DRUGS (3)
  1. REMICADE [Suspect]
     Indication: CROHN^S DISEASE
     Route: 042
     Dates: start: 20100305, end: 20110318
  2. HUMIRA [Concomitant]
     Route: 065
     Dates: start: 20110427
  3. ZOFRAN [Concomitant]
     Dosage: AS NEEDED
     Route: 065

REACTIONS (1)
  - Crohn^s disease [Recovered/Resolved]
